FAERS Safety Report 19177246 (Version 1)
Quarter: 2021Q2

REPORT INFORMATION
  Report Type: Spontaneous
  Country: US (occurrence: US)
  Receive Date: 20210425
  Receipt Date: 20210425
  Transmission Date: 20210717
  Serious: No
  Sender: FDA-Public Use
  Company Number: US-GLAXOSMITHKLINE-USCH2021AMR021096

PATIENT
  Sex: Female

DRUGS (4)
  1. IBUPROFEN. [Suspect]
     Active Substance: IBUPROFEN
     Indication: ADVERSE EVENT FOLLOWING IMMUNISATION
     Dosage: UNK
     Route: 048
     Dates: start: 20210309
  2. TYLENOL [Suspect]
     Active Substance: ACETAMINOPHEN
     Indication: ADVERSE EVENT FOLLOWING IMMUNISATION
     Dosage: 2 DF
     Route: 048
  3. TIZANIDINE. [Concomitant]
     Active Substance: TIZANIDINE
     Indication: MUSCLE SPASMS
     Dosage: 4 MG, QD (1 TABLET EVERY 8 HOURS)
     Route: 048
  4. TIZANIDINE. [Concomitant]
     Active Substance: TIZANIDINE
     Indication: MUSCLE TIGHTNESS

REACTIONS (1)
  - Product use issue [Unknown]
